FAERS Safety Report 10378078 (Version 2)
Quarter: 2014Q3

REPORT INFORMATION
  Report Type: Spontaneous
  Country: US (occurrence: US)
  Receive Date: 20140812
  Receipt Date: 20140812
  Transmission Date: 20150326
  Serious: Yes (Hospitalization)
  Sender: FDA-Public Use
  Company Number: US-SA-2014SA102947

PATIENT
  Age: 82 Year
  Sex: Male

DRUGS (1)
  1. CEREZYME [Suspect]
     Active Substance: IMIGLUCERASE
     Indication: GAUCHER^S DISEASE
     Dosage: DOSE:5200 UNIT(S)
     Route: 042
     Dates: start: 20101018

REACTIONS (6)
  - Muscle atrophy [Unknown]
  - Renal disorder [Unknown]
  - Dyspnoea [Unknown]
  - Mobility decreased [Unknown]
  - Pulmonary oedema [Unknown]
  - Hernia [Unknown]

NARRATIVE: CASE EVENT DATE: 2014
